FAERS Safety Report 10073233 (Version 1)
Quarter: 2014Q2

REPORT INFORMATION
  Report Type: Spontaneous
  Country: US (occurrence: US)
  Receive Date: 20140411
  Receipt Date: 20140411
  Transmission Date: 20141212
  Serious: Yes (Hospitalization)
  Sender: FDA-Public Use
  Company Number: US-GLAXOSMITHKLINE-A1068257A

PATIENT
  Age: 79 Year
  Sex: Male

DRUGS (18)
  1. ADVAIR [Suspect]
     Indication: CHRONIC OBSTRUCTIVE PULMONARY DISEASE
     Dosage: 1PUFF TWICE PER DAY
     Route: 055
  2. SPIRIVA [Concomitant]
  3. OMEPRAZOLE [Concomitant]
  4. ATENOLOL [Concomitant]
  5. TAMSULOSIN HYDROCHLORIDE [Concomitant]
  6. DILTIAZEM [Concomitant]
  7. FINASTERIDE [Concomitant]
  8. LISINOPRIL [Concomitant]
  9. DOXAZOSIN MESYLATE [Concomitant]
  10. PRO-AIR [Concomitant]
  11. REFRESH EYE DROPS [Concomitant]
  12. ASPIRIN [Concomitant]
  13. VITAMIN B-12 [Concomitant]
  14. MULTIVITAMIN [Concomitant]
  15. ANTIBIOTICS [Concomitant]
  16. NYQUIL [Concomitant]
  17. TYLENOL WITH CODEINE [Concomitant]
  18. LIDOCAINE 5% [Concomitant]

REACTIONS (5)
  - Spinal fracture [Recovered/Resolved]
  - Nasopharyngitis [Not Recovered/Not Resolved]
  - Headache [Not Recovered/Not Resolved]
  - Cough [Not Recovered/Not Resolved]
  - Fall [Recovered/Resolved]
